FAERS Safety Report 15184115 (Version 1)
Quarter: 2018Q4

REPORT INFORMATION
  Report Type: Spontaneous
  Country: US (occurrence: US)
  Receive Date: 20180723
  Receipt Date: 20180723
  Transmission Date: 20190204
  Serious: No
  Sender: FDA-Public Use
  Company Number: US-SA-2018SA194560

PATIENT
  Sex: Female

DRUGS (12)
  1. MONTELUKAST [Concomitant]
     Active Substance: MONTELUKAST SODIUM
  2. SERTRALINE [Concomitant]
     Active Substance: SERTRALINE HYDROCHLORIDE
  3. GABAPENTIN. [Concomitant]
     Active Substance: GABAPENTIN
  4. LEVOCETIRIZINE [Concomitant]
     Active Substance: LEVOCETIRIZINE
  5. PRALUENT [Suspect]
     Active Substance: ALIROCUMAB
     Indication: TYPE IIA HYPERLIPIDAEMIA
     Dosage: 75 MG, QOW
     Route: 058
     Dates: start: 201603
  6. ESTRACE [Concomitant]
     Active Substance: ESTRADIOL
  7. LEVOTHYROXINE. [Concomitant]
     Active Substance: LEVOTHYROXINE
  8. FLUTICASONE. [Concomitant]
     Active Substance: FLUTICASONE
  9. ALPRAZOLAM. [Concomitant]
     Active Substance: ALPRAZOLAM
  10. CLONAZEPAM. [Concomitant]
     Active Substance: CLONAZEPAM
  11. AMOXICILLIN. [Concomitant]
     Active Substance: AMOXICILLIN
  12. PRALUENT [Suspect]
     Active Substance: ALIROCUMAB
     Indication: TYPE IIA HYPERLIPIDAEMIA
     Dosage: 75 MG, QOW
     Route: 058
     Dates: start: 201603

REACTIONS (1)
  - Muscle spasms [Not Recovered/Not Resolved]
